FAERS Safety Report 18871559 (Version 1)
Quarter: 2021Q1

REPORT INFORMATION
  Report Type: Spontaneous
  Country: JP (occurrence: JP)
  Receive Date: 20210210
  Receipt Date: 20210210
  Transmission Date: 20210420
  Serious: Yes (Life-Threatening, Hospitalization, Other)
  Sender: FDA-Public Use
  Company Number: JP-ACCORD-216887

PATIENT
  Age: 41 Year
  Sex: Male
  Weight: 53.3 kg

DRUGS (4)
  1. CASPOFUNGIN [Concomitant]
     Active Substance: CASPOFUNGIN
     Indication: PULMONARY MYCOSIS
  2. ITRACONAZOLE. [Suspect]
     Active Substance: ITRACONAZOLE
     Indication: PULMONARY MYCOSIS
     Route: 042
  3. ITRACONAZOLE. [Suspect]
     Active Substance: ITRACONAZOLE
     Indication: PULMONARY MYCOSIS
     Route: 048
  4. ITRACONAZOLE. [Suspect]
     Active Substance: ITRACONAZOLE
     Indication: PULMONARY MYCOSIS
     Route: 042

REACTIONS (10)
  - Drug level increased [Unknown]
  - Liver function test increased [Unknown]
  - Cardiomegaly [Unknown]
  - Pericardial effusion [Unknown]
  - Chronic granulomatous disease [Unknown]
  - Stridor [Unknown]
  - Respiratory distress [Unknown]
  - Anaemia [Unknown]
  - Disease progression [Unknown]
  - Pneumonia [Unknown]
